FAERS Safety Report 10287452 (Version 2)
Quarter: 2014Q4

REPORT INFORMATION
  Report Type: Spontaneous
  Country: US (occurrence: US)
  Receive Date: 20140709
  Receipt Date: 20141009
  Transmission Date: 20150528
  Serious: Yes (Hospitalization, Other)
  Sender: FDA-Public Use
  Company Number: US-GLAXOSMITHKLINE-A1079967A

PATIENT
  Age: 65 Year
  Sex: Female

DRUGS (6)
  1. ADVAIR HFA [Suspect]
     Active Substance: FLUTICASONE PROPIONATE\SALMETEROL XINAFOATE
     Indication: ASTHMA
     Dosage: 1 PUFF, BID
     Route: 055
     Dates: start: 2010
  2. PRAVASTATIN [Concomitant]
     Active Substance: PRAVASTATIN\PRAVASTATIN SODIUM
  3. NORVASC [Concomitant]
     Active Substance: AMLODIPINE BESYLATE
  4. AROMASIN [Concomitant]
     Active Substance: EXEMESTANE
  5. PROAIR HFA [Concomitant]
     Active Substance: ALBUTEROL SULFATE
  6. COZAAR [Concomitant]
     Active Substance: LOSARTAN POTASSIUM

REACTIONS (2)
  - Breast cancer [Recovering/Resolving]
  - Mastectomy [Recovered/Resolved]

NARRATIVE: CASE EVENT DATE: 201208
